FAERS Safety Report 9294922 (Version 1)
Quarter: 2013Q2

REPORT INFORMATION
  Report Type: Spontaneous
  Country: US (occurrence: None)
  Receive Date: 20130514
  Receipt Date: 20130514
  Transmission Date: 20140414
  Serious: Yes (Hospitalization)
  Sender: FDA-Public Use
  Company Number: 011527581A

PATIENT
  Age: 47 Year
  Sex: Female

DRUGS (6)
  1. * MB ANTIOXIDANT DAY CREAM SPF 20 [Suspect]
     Dosage: DERMAL TWICE DAILY
     Dates: start: 20130215, end: 20130312
  2. * MB SKIN BRIGHTENING DECOLLETE+NECK TREATMENT SPF15 [Suspect]
     Dosage: DERMAL TWICE DAILY
     Dates: start: 20130215, end: 20130312
  3. INSULIN NOVOLONG [Concomitant]
  4. LEVEMIR [Concomitant]
  5. NORVASC [Concomitant]
  6. OTHER MEDICAL NOT DISCLOSED [Concomitant]

REACTIONS (4)
  - Swelling face [None]
  - Facial pain [None]
  - Anxiety [None]
  - Scar [None]
